APPROVED DRUG PRODUCT: SULFASALAZINE
Active Ingredient: SULFASALAZINE
Strength: 500MG
Dosage Form/Route: TABLET;ORAL
Application: A089339 | Product #001
Applicant: SUPERPHARM CORP
Approved: Oct 26, 1987 | RLD: No | RS: No | Type: DISCN